FAERS Safety Report 5976219-5 (Version None)
Quarter: 2008Q4

REPORT INFORMATION
  Report Type: 
  Country: None (occurrence: None)
  Receive Date: 20081202
  Receipt Date: 20081118
  Transmission Date: 20090506
  Serious: Yes (Hospitalization)
  Sender: FDA-Public Use
  Company Number: FR-ASTRAZENECA-2008CG01690

PATIENT
  Age: 5781 Day
  Sex: Female

DRUGS (4)
  1. ZOMIGORO [Suspect]
     Indication: HEADACHE
     Route: 048
     Dates: start: 20081015, end: 20081015
  2. IBUPROFEN TABLETS [Suspect]
     Indication: HEADACHE
     Route: 048
     Dates: start: 20081016, end: 20081019
  3. BI-PROFENID [Suspect]
     Indication: HEADACHE
     Route: 048
     Dates: start: 20081016, end: 20081019
  4. ACETAMINOPHEN [Suspect]
     Indication: HEADACHE
     Route: 048
     Dates: start: 20081016, end: 20081019

REACTIONS (4)
  - DRUG ABUSE [None]
  - ECCHYMOSIS [None]
  - HEADACHE [None]
  - VOMITING [None]
